FAERS Safety Report 24708512 (Version 11)
Quarter: 2025Q3

REPORT INFORMATION
  Report Type: Spontaneous
  Country: EU (occurrence: EU)
  Receive Date: 20241207
  Receipt Date: 20250828
  Transmission Date: 20251020
  Serious: Yes (Death, Life-Threatening, Hospitalization, Other)
  Sender: CELLTRION
  Company Number: EU-CELLTRION INC.-2024IT029698

PATIENT

DRUGS (83)
  1. RITUXIMAB [Suspect]
     Active Substance: RITUXIMAB
     Indication: Diffuse large B-cell lymphoma stage III
     Route: 042
     Dates: start: 20240430
  2. RITUXIMAB [Suspect]
     Active Substance: RITUXIMAB
     Indication: Richter^s syndrome
     Dates: start: 20240415, end: 20240415
  3. RITUXIMAB [Suspect]
     Active Substance: RITUXIMAB
     Route: 065
     Dates: start: 20240415, end: 20240424
  4. RITUXIMAB [Suspect]
     Active Substance: RITUXIMAB
     Route: 042
     Dates: start: 20240430, end: 20240430
  5. DOXORUBICIN [Suspect]
     Active Substance: DOXORUBICIN
     Indication: Diffuse large B-cell lymphoma stage III
     Route: 042
     Dates: start: 20240430
  6. DOXORUBICIN [Suspect]
     Active Substance: DOXORUBICIN
     Indication: Richter^s syndrome
     Route: 065
     Dates: start: 20240412, end: 20240412
  7. CYCLOPHOSPHAMIDE [Suspect]
     Active Substance: CYCLOPHOSPHAMIDE
     Indication: Diffuse large B-cell lymphoma stage III
     Route: 042
     Dates: start: 20240430, end: 20240430
  8. CYCLOPHOSPHAMIDE [Suspect]
     Active Substance: CYCLOPHOSPHAMIDE
     Indication: Richter^s syndrome
     Route: 065
     Dates: start: 20240412, end: 20240412
  9. CYCLOPHOSPHAMIDE [Suspect]
     Active Substance: CYCLOPHOSPHAMIDE
     Route: 042
     Dates: start: 20240412, end: 20240412
  10. VINCRISTINE SULFATE [Suspect]
     Active Substance: VINCRISTINE SULFATE
     Indication: Diffuse large B-cell lymphoma stage III
     Route: 042
     Dates: start: 20240430, end: 20240430
  11. VINCRISTINE SULFATE [Suspect]
     Active Substance: VINCRISTINE SULFATE
     Indication: Richter^s syndrome
  12. PREDNISONE [Suspect]
     Active Substance: PREDNISONE
     Indication: Diffuse large B-cell lymphoma stage III
     Dosage: 100 MG, EVERY 1 WEEK, RECOMMENDED CAP OF 2 MG) / 100 MG, QD, C1D1
     Route: 048
     Dates: start: 20240430, end: 20240506
  13. PREDNISONE [Suspect]
     Active Substance: PREDNISONE
     Indication: Richter^s syndrome
  14. EPCORITAMAB [Suspect]
     Active Substance: EPCORITAMAB
     Indication: Diffuse large B-cell lymphoma stage III
     Route: 058
     Dates: start: 20240502, end: 20240502
  15. EPCORITAMAB [Suspect]
     Active Substance: EPCORITAMAB
     Indication: Richter^s syndrome
     Route: 058
     Dates: start: 20240510, end: 20240510
  16. EPCORITAMAB [Suspect]
     Active Substance: EPCORITAMAB
     Route: 058
     Dates: start: 20240517, end: 20240517
  17. HYDROCORTISONE [Suspect]
     Active Substance: HYDROCORTISONE
     Indication: Diffuse large B-cell lymphoma stage III
     Route: 042
     Dates: start: 20240430, end: 20240430
  18. VINCRISTINE [Suspect]
     Active Substance: VINCRISTINE
     Indication: Product used for unknown indication
     Route: 065
     Dates: start: 20240409, end: 20240409
  19. CHLORPHENIRAMINE MALEATE [Concomitant]
     Active Substance: CHLORPHENIRAMINE MALEATE
     Indication: Premedication
     Dates: start: 20240415, end: 20240415
  20. CHLORPHENIRAMINE MALEATE [Concomitant]
     Active Substance: CHLORPHENIRAMINE MALEATE
     Dates: start: 20240430, end: 20240517
  21. CHLORPHENIRAMINE MALEATE [Concomitant]
     Active Substance: CHLORPHENIRAMINE MALEATE
     Route: 065
     Dates: start: 20240415, end: 20240430
  22. CHLORPHENIRAMINE MALEATE [Concomitant]
     Active Substance: CHLORPHENIRAMINE MALEATE
     Route: 042
     Dates: start: 20240502, end: 20240517
  23. CHLORPHENIRAMINE MALEATE [Concomitant]
     Active Substance: CHLORPHENIRAMINE MALEATE
     Route: 042
     Dates: start: 20240517, end: 20240517
  24. DEXAMETHASONE [Concomitant]
     Active Substance: DEXAMETHASONE
     Indication: Prophylaxis
     Route: 065
     Dates: start: 20240409, end: 20240430
  25. DEXAMETHASONE [Concomitant]
     Active Substance: DEXAMETHASONE
     Route: 042
     Dates: start: 20240502, end: 20240502
  26. DEXAMETHASONE [Concomitant]
     Active Substance: DEXAMETHASONE
     Route: 042
     Dates: start: 20240509, end: 20240519
  27. HYDROCORTISONE [Concomitant]
     Active Substance: HYDROCORTISONE
     Indication: Diffuse large B-cell lymphoma stage III
     Route: 042
     Dates: start: 20240415, end: 20240430
  28. LEVOFLOXACIN [Concomitant]
     Active Substance: LEVOFLOXACIN
     Route: 065
     Dates: start: 20240506, end: 20240513
  29. MOVICOL [Concomitant]
     Active Substance: POLYETHYLENE GLYCOL 3350\POTASSIUM CHLORIDE\SODIUM BICARBONATE\SODIUM CHLORIDE
     Route: 065
     Dates: start: 20240402, end: 20240419
  30. NALOXONE HYDROCHLORIDE\OXYCODONE HYDROCHLORIDE [Concomitant]
     Active Substance: NALOXONE HYDROCHLORIDE\OXYCODONE HYDROCHLORIDE
     Route: 065
     Dates: start: 20240402, end: 20240419
  31. ZANUBRUTINIB [Concomitant]
     Active Substance: ZANUBRUTINIB
     Route: 065
     Dates: start: 20240408, end: 20240516
  32. URSODIOL [Concomitant]
     Active Substance: URSODIOL
     Route: 065
     Dates: start: 20240402, end: 20240418
  33. ALLOPURINOL [Concomitant]
     Active Substance: ALLOPURINOL
     Route: 065
     Dates: start: 20240402, end: 20240515
  34. ACYCLOVIR [Concomitant]
     Active Substance: ACYCLOVIR
     Route: 065
     Dates: start: 20240402
  35. ENOXAPARIN [Concomitant]
     Active Substance: ENOXAPARIN
     Route: 065
     Dates: start: 20240402
  36. BACTRIM [Concomitant]
     Active Substance: SULFAMETHOXAZOLE\TRIMETHOPRIM
     Route: 065
     Dates: start: 20240403
  37. FOLIC ACID [Concomitant]
     Active Substance: FOLIC ACID
     Route: 065
     Dates: start: 20240406
  38. MORPHINE HYDROCHLORIDE [Concomitant]
     Active Substance: MORPHINE HYDROCHLORIDE
     Dates: start: 20240408, end: 20240411
  39. MORPHINE HYDROCHLORIDE [Concomitant]
     Active Substance: MORPHINE HYDROCHLORIDE
     Route: 065
     Dates: start: 20240408, end: 20240520
  40. PANTOPRAZOLE [Concomitant]
     Active Substance: PANTOPRAZOLE
     Route: 065
     Dates: start: 20240408
  41. FENTANYL [Concomitant]
     Active Substance: FENTANYL
     Route: 065
     Dates: start: 20240409
  42. FLUCONAZOLE [Concomitant]
     Active Substance: FLUCONAZOLE
     Route: 065
     Dates: start: 20240415, end: 20240415
  43. NALDEMEDINE [Concomitant]
     Active Substance: NALDEMEDINE
     Route: 065
     Dates: start: 20240409, end: 20240419
  44. SENNOSIDES [Concomitant]
     Active Substance: SENNOSIDES
     Route: 065
     Dates: start: 20240409, end: 20240418
  45. LYRICA [Concomitant]
     Active Substance: PREGABALIN
     Route: 065
     Dates: start: 20240410
  46. KETOROLAC TROMETHAMINE [Concomitant]
     Active Substance: KETOROLAC TROMETHAMINE
     Route: 065
     Dates: start: 20240411, end: 20240414
  47. RASBURICASE [Concomitant]
     Active Substance: RASBURICASE
     Dates: start: 20240412, end: 20240412
  48. RASBURICASE [Concomitant]
     Active Substance: RASBURICASE
     Route: 065
     Dates: start: 20240412, end: 20240519
  49. PALONOSETRON [Concomitant]
     Active Substance: PALONOSETRON
     Dates: start: 20240412, end: 20240412
  50. PALONOSETRON [Concomitant]
     Active Substance: PALONOSETRON
     Route: 065
     Dates: start: 20240412, end: 20240430
  51. FILGRASTIM [Concomitant]
     Active Substance: FILGRASTIM
     Route: 065
     Dates: start: 20240424, end: 20240426
  52. NALDEMEDINE TOSYLATE [Concomitant]
     Active Substance: NALDEMEDINE TOSYLATE
     Route: 065
     Dates: start: 20240424
  53. NALOXONE HYDROCHLORIDE\OXYCODONE HYDROCHLORIDE [Concomitant]
     Active Substance: NALOXONE HYDROCHLORIDE\OXYCODONE HYDROCHLORIDE
     Route: 065
     Dates: start: 20240424
  54. LASIX [Concomitant]
     Active Substance: FUROSEMIDE
     Route: 065
     Dates: start: 20240429, end: 20240429
  55. ERYTHROPOIETIN [Concomitant]
     Active Substance: ERYTHROPOIETIN
     Route: 065
     Dates: start: 20240507
  56. ACETAMINOPHEN [Concomitant]
     Active Substance: ACETAMINOPHEN
     Indication: Premedication
     Route: 065
     Dates: start: 20240402
  57. ACETAMINOPHEN [Concomitant]
     Active Substance: ACETAMINOPHEN
     Route: 048
     Dates: start: 20240430, end: 20240517
  58. ACETAMINOPHEN [Concomitant]
     Active Substance: ACETAMINOPHEN
     Route: 048
     Dates: start: 20240502, end: 20240517
  59. ACETAMINOPHEN [Concomitant]
     Active Substance: ACETAMINOPHEN
     Route: 048
     Dates: start: 20240517, end: 20240517
  60. VINCRISTINE [Concomitant]
     Active Substance: VINCRISTINE
     Indication: Premedication
     Route: 065
     Dates: start: 20240409, end: 20240409
  61. DEXAMETHASONE PHOSPHATE [Concomitant]
     Active Substance: DEXAMETHASONE PHOSPHATE
     Indication: Prophylaxis
     Route: 042
     Dates: start: 20240502, end: 20240502
  62. DEXAMETHASONE PHOSPHATE [Concomitant]
     Active Substance: DEXAMETHASONE PHOSPHATE
     Route: 065
     Dates: start: 20240517, end: 20240519
  63. RABEPRAZOLE [Concomitant]
     Active Substance: RABEPRAZOLE
     Route: 065
     Dates: start: 20240510, end: 20240519
  64. FUROSEMIDE [Concomitant]
     Active Substance: FUROSEMIDE
     Route: 065
     Dates: start: 20240510, end: 20240511
  65. FUROSEMIDE [Concomitant]
     Active Substance: FUROSEMIDE
     Dates: start: 20240429, end: 20240429
  66. CANRENOATE POTASSIUM [Concomitant]
     Active Substance: CANRENOATE POTASSIUM
     Route: 065
     Dates: start: 20240510, end: 20240511
  67. OLICLINOMEL [AMINO ACIDS NOS;CARBOHYDRATES NOS;ELECTROLYTES NOS;LIPIDS [Concomitant]
     Route: 065
     Dates: start: 20240513, end: 20240518
  68. VITAMINS NOS [Concomitant]
     Active Substance: VITAMINS
     Route: 065
     Dates: start: 20240513
  69. LEVOSULPIRIDE [Concomitant]
     Active Substance: LEVOSULPIRIDE
     Route: 065
     Dates: start: 20240514, end: 20240519
  70. GLUCOSE;POTASSIUM CHLORIDE [Concomitant]
     Route: 065
     Dates: start: 20240514, end: 20240518
  71. FENTANYL [Concomitant]
     Active Substance: FENTANYL
     Route: 065
     Dates: start: 20240516, end: 20240516
  72. FLAVOXATE;PROPYPHENAZONE [Concomitant]
     Route: 065
     Dates: start: 20240516
  73. TAMSULOSIN HYDROCHLORIDE [Concomitant]
     Active Substance: TAMSULOSIN HYDROCHLORIDE
     Route: 065
     Dates: start: 20240516
  74. INSULIN HUMAN [Concomitant]
     Active Substance: INSULIN HUMAN
     Route: 065
     Dates: start: 20240518, end: 20240520
  75. TRAMADOL [Concomitant]
     Active Substance: TRAMADOL
     Route: 065
     Dates: start: 20240519, end: 20240519
  76. ONDANSETRON [Concomitant]
     Active Substance: ONDANSETRON
     Route: 065
     Dates: start: 20240519, end: 20240519
  77. NEOSTIGMINE METHYLSULFATE [Concomitant]
     Active Substance: NEOSTIGMINE METHYLSULFATE
     Route: 065
     Dates: start: 20240519, end: 20240519
  78. DELORAZEPAM [Concomitant]
     Active Substance: DELORAZEPAM
     Route: 065
     Dates: start: 20240519, end: 20240519
  79. DEXMEDETOMIDINE HYDROCHLORIDE [Concomitant]
     Active Substance: DEXMEDETOMIDINE HYDROCHLORIDE
     Route: 065
     Dates: start: 20240520, end: 20240520
  80. TALOFEN [Concomitant]
     Active Substance: PROMAZINE HYDROCHLORIDE
     Route: 065
     Dates: start: 20240520, end: 20240520
  81. CYTARABINE [Concomitant]
     Active Substance: CYTARABINE
     Indication: Renal ischaemia
     Route: 042
  82. CYTARABINE [Concomitant]
     Active Substance: CYTARABINE
     Route: 065
     Dates: start: 20240519, end: 20240519
  83. PREDNISONE [Concomitant]
     Active Substance: PREDNISONE
     Route: 048
     Dates: start: 20240430, end: 20240506

REACTIONS (6)
  - Disease progression [Fatal]
  - Renal ischaemia [Not Recovered/Not Resolved]
  - Febrile neutropenia [Recovered/Resolved]
  - Abdominal mass [Unknown]
  - Sinus tachycardia [Unknown]
  - Anaemia [Unknown]

NARRATIVE: CASE EVENT DATE: 20240509
